FAERS Safety Report 22061486 (Version 1)
Quarter: 2023Q1

REPORT INFORMATION
  Report Type: Spontaneous
  Country: GB (occurrence: None)
  Receive Date: 20230304
  Receipt Date: 20230304
  Transmission Date: 20230418
  Serious: Yes (Other)
  Sender: FDA-Public Use
  Company Number: GB-MHRA-MED-202302221004099550-LBJZD

PATIENT
  Age: 77 Year
  Sex: Male

DRUGS (1)
  1. PIRFENIDONE [Suspect]
     Active Substance: PIRFENIDONE
     Indication: Product used for unknown indication
     Dosage: FULL DOSE IS 3 TDS BUT TAKING 1 TDS DUE TO SIDE EFFECTS
     Route: 065

REACTIONS (1)
  - Illness [Not Recovered/Not Resolved]
